FAERS Safety Report 5164377-4 (Version None)
Quarter: 2006Q4

REPORT INFORMATION
  Report Type: 
  Country: None (occurrence: None)
  Receive Date: 20061205
  Receipt Date: 20061108
  Transmission Date: 20070319
  Serious: Yes (Other)
  Sender: FDA-Public Use
  Company Number: JP-NOVOPROD-258501

PATIENT
  Age: 34 Year
  Sex: Female
  Weight: 49 kg

DRUGS (7)
  1. NOVOLIN R [Suspect]
     Indication: DIABETES MELLITUS INSULIN-DEPENDENT
     Dosage: 6 IU, QD
     Route: 058
     Dates: start: 19840101
  2. PENFILL N CHU [Suspect]
     Indication: DIABETES MELLITUS INSULIN-DEPENDENT
     Dosage: 3 IU, QD
     Dates: start: 19840101
  3. LASIX [Concomitant]
     Dosage: 20-40 MG
     Route: 048
  4. BLOPRESS [Concomitant]
     Dosage: 12 MG, QD
     Route: 048
  5. ADALAT [Concomitant]
     Dosage: 20 MG, QD
     Route: 048
  6. FLUITRAN [Concomitant]
     Dosage: 2 MG, QD
     Route: 048
  7. ONEALFA [Concomitant]
     Dosage: .5 UG, QD
     Route: 048

REACTIONS (1)
  - GASTRIC CANCER [None]
